FAERS Safety Report 25219204 (Version 1)
Quarter: 2025Q2

REPORT INFORMATION
  Report Type: Report from Study
  Country: US (occurrence: US)
  Receive Date: 20250421
  Receipt Date: 20250421
  Transmission Date: 20250716
  Serious: Yes (Other)
  Sender: ALEXION PHARMACEUTICALS
  Company Number: US-AstraZeneca-CH-00848891A

PATIENT
  Age: 81 Year

DRUGS (1)
  1. OSIMERTINIB [Suspect]
     Active Substance: OSIMERTINIB
     Indication: Lung neoplasm malignant
     Dosage: 40 MILLIGRAM, QD

REACTIONS (9)
  - Productive cough [Unknown]
  - Asthenia [Unknown]
  - Neuropathy peripheral [Unknown]
  - Paraesthesia [Unknown]
  - Pyrexia [Unknown]
  - Malaise [Unknown]
  - Productive cough [Unknown]
  - Cough [Unknown]
  - Wheezing [Unknown]
